FAERS Safety Report 6160841-X (Version None)
Quarter: 2009Q2

REPORT INFORMATION
  Report Type: 
  Country: None (occurrence: None)
  Receive Date: 20090420
  Receipt Date: 20090406
  Transmission Date: 20091009
  Serious: No
  Sender: FDA-Public Use
  Company Number: BR-ROCHE-626323

PATIENT
  Sex: Female
  Weight: 64 kg

DRUGS (1)
  1. ROACUTAN [Suspect]
     Indication: ACNE
     Route: 048
     Dates: start: 20080201, end: 20081001

REACTIONS (2)
  - NO ADVERSE EVENT [None]
  - PREGNANCY [None]
